FAERS Safety Report 19413479 (Version 4)
Quarter: 2021Q4

REPORT INFORMATION
  Report Type: Other
  Country: US (occurrence: US)
  Receive Date: 20210615
  Receipt Date: 20211026
  Transmission Date: 20220304
  Serious: Yes (Hospitalization, Other)
  Sender: FDA-Public Use
  Company Number: US-ROCHE-2848750

PATIENT
  Age: 77 Year
  Sex: Male
  Weight: 81.27 kg

DRUGS (6)
  1. ESBRIET [Suspect]
     Active Substance: PIRFENIDONE
     Indication: Idiopathic pulmonary fibrosis
     Route: 048
  2. ESBRIET [Suspect]
     Active Substance: PIRFENIDONE
     Dosage: 9 PILLS PER DAY; 3 PILLS (267 MG EACH) FOR MORNING, LUNCH, AND BEDTIME.
     Route: 048
     Dates: start: 2018
  3. ISOSORBIDE [Concomitant]
     Active Substance: ISOSORBIDE
     Indication: Blood pressure measurement
     Route: 048
  4. FENOFIBRATE [Concomitant]
     Active Substance: FENOFIBRATE
     Indication: Blood pressure measurement
     Route: 048
  5. OXYGEN [Concomitant]
     Active Substance: OXYGEN
  6. AMLODIPINE [Concomitant]
     Active Substance: AMLODIPINE BESYLATE
     Indication: Blood pressure measurement
     Route: 048

REACTIONS (5)
  - Prostate cancer [Recovered/Resolved]
  - COVID-19 [Recovered/Resolved with Sequelae]
  - Pneumonia [Recovered/Resolved with Sequelae]
  - Pain [Recovered/Resolved]
  - Macular degeneration [Not Recovered/Not Resolved]

NARRATIVE: CASE EVENT DATE: 20191231
